FAERS Safety Report 6737896-4 (Version None)
Quarter: 2010Q2

REPORT INFORMATION
  Report Type: 
  Country: None (occurrence: None)
  Receive Date: 20100524
  Receipt Date: 20100519
  Transmission Date: 20101027
  Serious: Yes (Hospitalization)
  Sender: FDA-Public Use
  Company Number: FR-ROCHE-677077

PATIENT
  Sex: Female

DRUGS (7)
  1. KYTRIL [Suspect]
     Indication: PREMEDICATION
     Dosage: FORM: INJECTABLE SOLUTION, STRENGTH: 3 MG/3ML
     Route: 042
     Dates: start: 20090930, end: 20090930
  2. KYTRIL [Suspect]
     Route: 042
     Dates: start: 20091014, end: 20091014
  3. GEMZAR [Suspect]
     Indication: BREAST CANCER
     Route: 042
     Dates: start: 20090930, end: 20090930
  4. ELOXATIN [Suspect]
     Indication: BREAST CANCER
     Route: 042
     Dates: start: 20090930, end: 20090930
  5. ELOXATIN [Suspect]
     Route: 042
     Dates: start: 20091014, end: 20091014
  6. POLARAMINE [Suspect]
     Indication: PREMEDICATION
     Route: 042
     Dates: start: 20091014, end: 20091014
  7. METHYLPREDNISOLONE [Suspect]
     Indication: PREMEDICATION
     Route: 042
     Dates: start: 20091014, end: 20091014

REACTIONS (6)
  - DYSPHAGIA [None]
  - DYSPNOEA [None]
  - HYPERTENSION [None]
  - JOINT CONTRACTURE [None]
  - MUSCLE SPASMS [None]
  - PARALYSIS [None]
